FAERS Safety Report 4511836-0 (Version None)
Quarter: 2004Q4

REPORT INFORMATION
  Report Type: 
  Country: None (occurrence: None)
  Receive Date: 20041123
  Receipt Date: 20041110
  Transmission Date: 20050328
  Serious: Yes (Hospitalization)
  Sender: FDA-Public Use
  Company Number: 2004081925

PATIENT
  Age: 37 Year
  Sex: Male
  Weight: 72.5755 kg

DRUGS (8)
  1. BENADRYL [Suspect]
     Indication: HYPERSENSITIVITY
     Dosage: 1-2 TABLETS A DAY EVERY 6 HRS, ORAL
     Route: 048
  2. VISINE II EYE DROPS [Suspect]
     Indication: EYE REDNESS
     Dosage: OPHTHALMIC
     Route: 047
  3. BENADRYL ALLERGY/COLD (DIPHENHYDRAMINE, PARACETAMOL, PSEUDOEPHEDRINE) [Suspect]
     Indication: SNEEZING
     Dosage: AS PRESCRIBED FOR ADULTS, ORAL
     Route: 048
     Dates: start: 20040825
  4. CEFUROXIME [Suspect]
     Dosage: 500MG, BID, ORAL
     Route: 048
  5. MOMETASONE FUROATE [Concomitant]
  6. CARBAMAZEPINE [Concomitant]
  7. MULTIPLE VITAMINS (ASCORBIC ACID, ERGOCALCIFEROL, FOLIC ACID, RETINOL, [Concomitant]
  8. PARA-SELTZER (CAFFEINE, PARACETAMOL) [Concomitant]

REACTIONS (17)
  - ALANINE AMINOTRANSFERASE INCREASED [None]
  - BLOOD ALBUMIN INCREASED [None]
  - BLOOD ALKALINE PHOSPHATASE INCREASED [None]
  - BLOOD GLUCOSE INCREASED [None]
  - BLOOD PRESSURE INCREASED [None]
  - CONTUSION [None]
  - DRUG INEFFECTIVE [None]
  - FALL [None]
  - GAMMA-GLUTAMYLTRANSFERASE INCREASED [None]
  - GRAND MAL CONVULSION [None]
  - HEART RATE INCREASED [None]
  - LOSS OF CONSCIOUSNESS [None]
  - MIGRAINE [None]
  - ORBITAL OEDEMA [None]
  - PROTEIN TOTAL INCREASED [None]
  - SNEEZING [None]
  - VOMITING [None]
